FAERS Safety Report 13318361 (Version 3)
Quarter: 2017Q4

REPORT INFORMATION
  Report Type: Report from Study
  Country: US (occurrence: US)
  Receive Date: 20170310
  Receipt Date: 20171222
  Transmission Date: 20180320
  Serious: Yes (Hospitalization, Other)
  Sender: FDA-Public Use
  Company Number: US-JNJFOC-20161214284

PATIENT
  Sex: Female

DRUGS (6)
  1. IMBRUVICA [Suspect]
     Active Substance: IBRUTINIB
     Indication: CHRONIC LYMPHOCYTIC LEUKAEMIA
     Route: 048
     Dates: start: 20161218
  2. IMBRUVICA [Suspect]
     Active Substance: IBRUTINIB
     Indication: CHRONIC LYMPHOCYTIC LEUKAEMIA
     Route: 048
     Dates: start: 2017
  3. LISINOPRIL. [Concomitant]
     Active Substance: LISINOPRIL
  4. IMBRUVICA [Suspect]
     Active Substance: IBRUTINIB
     Indication: CHRONIC LYMPHOCYTIC LEUKAEMIA
     Route: 048
     Dates: start: 20150912
  5. IMBRUVICA [Suspect]
     Active Substance: IBRUTINIB
     Indication: CHRONIC LYMPHOCYTIC LEUKAEMIA
     Route: 048
     Dates: start: 20151114
  6. CARVEDILOL. [Concomitant]
     Active Substance: CARVEDILOL

REACTIONS (5)
  - Root canal infection [Unknown]
  - Hospitalisation [Unknown]
  - Stress cardiomyopathy [Unknown]
  - Skin ulcer [Unknown]
  - Rash erythematous [Unknown]

NARRATIVE: CASE EVENT DATE: 2017
